FAERS Safety Report 20986122 (Version 3)
Quarter: 2023Q1

REPORT INFORMATION
  Report Type: Spontaneous
  Country: SI (occurrence: SI)
  Receive Date: 20220621
  Receipt Date: 20230131
  Transmission Date: 20230418
  Serious: Yes (Hospitalization, Other)
  Sender: FDA-Public Use
  Company Number: SI-BRISTOL-MYERS SQUIBB COMPANY-2022-057615

PATIENT
  Age: 36 Year
  Sex: Male

DRUGS (2)
  1. APIXABAN [Suspect]
     Active Substance: APIXABAN
     Indication: Cerebral venous sinus thrombosis
     Dates: start: 201910, end: 202010
  2. APIXABAN [Suspect]
     Active Substance: APIXABAN
     Dates: start: 202011

REACTIONS (2)
  - Jugular vein thrombosis [Recovering/Resolving]
  - Sigmoid sinus thrombosis [Recovered/Resolved]
